FAERS Safety Report 4395113-7 (Version None)
Quarter: 2004Q3

REPORT INFORMATION
  Report Type: 
  Country: None (occurrence: None)
  Receive Date: 20040706
  Receipt Date: 20040621
  Transmission Date: 20050211
  Serious: Yes (Hospitalization)
  Sender: FDA-Public Use
  Company Number: 03P-013-0239809-00

PATIENT
  Age: 71 Year
  Sex: Female
  Weight: 82.3 kg

DRUGS (10)
  1. MERIDIA [Suspect]
     Indication: OBESITY
     Dosage: 1 IN 1 D, PER ORAL
     Route: 048
     Dates: start: 20031016
  2. MIXTARD HUMAN 70/30 [Concomitant]
  3. PANTOPRAZOLE SODIUM [Concomitant]
  4. CANDESARTAN CILEXETIL [Concomitant]
  5. CELECOXIB [Concomitant]
  6. GLIQUIDONE [Concomitant]
  7. METOPROLOL [Concomitant]
  8. ASPIRIN [Concomitant]
  9. METOPROLOL SUCCINATE [Concomitant]
  10. LORMETAZEPAM [Concomitant]

REACTIONS (4)
  - FAECALOMA [None]
  - NEUROGENIC BLADDER [None]
  - PULMONARY EMBOLISM [None]
  - RENAL FAILURE ACUTE [None]
